FAERS Safety Report 4988239-8 (Version None)
Quarter: 2006Q2

REPORT INFORMATION
  Report Type: 
  Country: None (occurrence: None)
  Receive Date: 20060425
  Receipt Date: 20060412
  Transmission Date: 20061013
  Serious: Yes (Life-Threatening, Other)
  Sender: FDA-Public Use
  Company Number: 2006051004

PATIENT
  Age: 60 Year
  Sex: Female

DRUGS (1)
  1. GABAPENTIN [Suspect]
     Indication: SCIATICA
     Dosage: 900 MG (300 MG, 3 IN 1 D); ORAL
     Route: 048

REACTIONS (4)
  - COMA [None]
  - DRUG TOXICITY [None]
  - HAEMODIALYSIS [None]
  - NERVOUS SYSTEM DISORDER [None]
